FAERS Safety Report 9868407 (Version 1)
Quarter: 2014Q1

REPORT INFORMATION
  Report Type: Report from Study
  Country: AU (occurrence: AU)
  Receive Date: 20140204
  Receipt Date: 20140204
  Transmission Date: 20141002
  Serious: Yes (Death)
  Sender: FDA-Public Use
  Company Number: AU-ALEXION PHARMACEUTICALS INC.-A201303495

PATIENT
  Age: 22 Year
  Sex: 0

DRUGS (9)
  1. ECULIZUMAB [Suspect]
     Indication: HAEMOLYTIC URAEMIC SYNDROME
     Dosage: UNK
     Route: 042
  2. METOPROLOL [Concomitant]
     Indication: HYPERTENSION
     Dosage: 100 MG, BID
     Route: 048
     Dates: start: 20130820
  3. MYCOPHENOLATE SODIUM [Concomitant]
     Indication: IMMUNOSUPPRESSION
     Dosage: UNK
     Route: 048
     Dates: start: 20130308
  4. PREDNISOLONE [Concomitant]
     Indication: IMMUNOSUPPRESSION
     Dosage: UNK
     Route: 048
     Dates: start: 20130308
  5. TRIMETHOPRIM SULFAMETHAXOZOLE [Concomitant]
     Indication: PROPHYLAXIS
     Dosage: UNK
     Route: 048
     Dates: start: 20130309
  6. RANITIDINE [Concomitant]
     Indication: GASTROOESOPHAGEAL REFLUX DISEASE
     Dosage: UNK
     Route: 048
     Dates: start: 20130309
  7. RANITIDINE [Concomitant]
     Indication: GASTRIC ULCER
  8. ARANESP [Concomitant]
     Indication: IMMUNISATION
     Dosage: UNK
     Route: 058
     Dates: start: 20130823
  9. BELATACEPT [Concomitant]
     Indication: BLOOD IMMUNOGLOBULIN G
     Dosage: UNK
     Route: 042
     Dates: start: 20130920

REACTIONS (1)
  - Death [Fatal]
